FAERS Safety Report 13865055 (Version 3)
Quarter: 2018Q2

REPORT INFORMATION
  Report Type: Spontaneous
  Country: US (occurrence: US)
  Receive Date: 20170814
  Receipt Date: 20180403
  Transmission Date: 20180711
  Serious: No
  Sender: FDA-Public Use
  Company Number: US-009507513-1708USA004720

PATIENT
  Age: 22 Year
  Sex: Female
  Weight: 112.2 kg

DRUGS (10)
  1. AMPHETAMINE (+) DEXTROAMPHETAMINE [Concomitant]
     Active Substance: AMPHETAMINE SULFATE\DEXTROAMPHETAMINE
     Dosage: UNK
     Route: 048
     Dates: start: 20170402
  2. SOOLANTRA [Concomitant]
     Active Substance: IVERMECTIN
     Dosage: 1 APPLICATION APPLY ON THE SKIN IN THE MORNING APPLY TO ENTIRE FACE AF
     Dates: start: 20170614
  3. DESVENLAFAXINE SUCCINATE. [Concomitant]
     Active Substance: DESVENLAFAXINE SUCCINATE
     Dosage: TAKE 1 TABLET BY MOUTH EVERY DAY
     Route: 048
     Dates: start: 20170330
  4. ACETAMINOPHEN (+) OXYCODONE HYDROCHLORIDE [Concomitant]
     Active Substance: ACETAMINOPHEN\OXYCODONE HYDROCHLORIDE
     Indication: PAIN
     Dosage: 1 TABLET EVERY 4 HOURS AS NEEDED
     Route: 048
     Dates: start: 20170422
  5. NEXPLANON [Suspect]
     Active Substance: ETONOGESTREL
     Indication: CONTRACEPTION
     Dosage: ONE ROD EVERY THREE YEARS, RIGHT ARM
     Route: 059
     Dates: start: 20170628, end: 20170806
  6. FLURANDRENOLIDE. [Concomitant]
     Active Substance: FLURANDRENOLIDE
     Dosage: 1 APPLICATION APPLY ON THE SKIN TWICE A DAY APPLY TO ITCHY AREAS
     Route: 062
     Dates: start: 20170614
  7. AMPHETAMINE (+) DEXTROAMPHETAMINE [Concomitant]
     Active Substance: AMPHETAMINE SULFATE\DEXTROAMPHETAMINE
     Dosage: TAKE 1 TABLET BY MOUTH EVERY DAY
     Route: 048
     Dates: start: 20170330
  8. LEVETIRACETAM. [Concomitant]
     Active Substance: LEVETIRACETAM
     Dosage: TAKE 3 TABLETS BY MOUTH AT NIGHT AND 1 TABLET AT 2 PM
  9. PROPRANOLOL HYDROCHLORIDE. [Concomitant]
     Active Substance: PROPRANOLOL HYDROCHLORIDE
     Dosage: TAKE 1 CAPSULE (60 MG TOTAL) BY MOUTH DAILY
     Route: 048
     Dates: start: 20160815
  10. DIAZEPAM. [Concomitant]
     Active Substance: DIAZEPAM
     Dosage: 1 TABLET BY MOUTH EVERY DAY
     Route: 048
     Dates: start: 20170420

REACTIONS (5)
  - Device deployment issue [Recovered/Resolved]
  - Vaginal discharge [Unknown]
  - Device expulsion [Recovered/Resolved]
  - Implant site infection [Unknown]
  - Implant site haemorrhage [Unknown]

NARRATIVE: CASE EVENT DATE: 2017
